FAERS Safety Report 5764869-0 (Version None)
Quarter: 2008Q2

REPORT INFORMATION
  Report Type: 
  Country: None (occurrence: None)
  Receive Date: 20080611
  Receipt Date: 20080602
  Transmission Date: 20081010
  Serious: Yes (Hospitalization, Other)
  Sender: FDA-Public Use
  Company Number: DE-BAYER-200819818GPV

PATIENT
  Age: 57 Year
  Sex: Male

DRUGS (2)
  1. FLUDARABINE PHOSPHATE [Suspect]
     Indication: CHRONIC LYMPHOCYTIC LEUKAEMIA
     Dosage: TOTAL DAILY DOSE: 25 MG/M2
     Route: 042
     Dates: start: 20050101
  2. CORTICOSTEROIDS [Concomitant]
     Indication: PSORIASIS
     Route: 065
     Dates: start: 20050101

REACTIONS (2)
  - HYPOGAMMAGLOBULINAEMIA [None]
  - PSORIASIS [None]
